FAERS Safety Report 9444039 (Version 1)
Quarter: 2013Q3

REPORT INFORMATION
  Report Type: Spontaneous
  Country: US (occurrence: US)
  Receive Date: 20130807
  Receipt Date: 20130807
  Transmission Date: 20140515
  Serious: Yes (Other)
  Sender: FDA-Public Use
  Company Number: US-AMGEN-USASP2013054959

PATIENT
  Sex: 0

DRUGS (3)
  1. ENBREL [Suspect]
     Indication: PRODUCT USED FOR UNKNOWN INDICATION
     Dosage: 50 MG, QWK
     Route: 065
     Dates: start: 201209
  2. TYLENOL                            /00020001/ [Concomitant]
     Indication: PYREXIA
     Dosage: 2 ML, QD
     Route: 048
     Dates: start: 20130402, end: 20130605
  3. PRENATAL VITAMINS                  /02014401/ [Concomitant]
     Indication: PREGNANCY
     Dosage: UNK UNK, QD
     Dates: start: 201205, end: 201302

REACTIONS (1)
  - Feeding disorder neonatal [Unknown]
